FAERS Safety Report 8914464 (Version 1)
Quarter: 2012Q4

REPORT INFORMATION
  Report Type: 
  Country: US (occurrence: US)
  Receive Date: 20121116
  Receipt Date: 20121116
  Transmission Date: 20130627
  Serious: No
  Sender: FDA-Public Use
  Company Number: US-009507513-1211USA003796

PATIENT
  Age: 72 Year
  Sex: Female

DRUGS (4)
  1. ZETIA [Suspect]
     Indication: BLOOD CHOLESTEROL
     Dosage: 10 mg, qd
     Route: 048
     Dates: start: 201206, end: 2012
  2. ZETIA [Suspect]
     Dosage: 10 mg, qod
     Route: 048
     Dates: start: 20121106
  3. MELATONIN [Concomitant]
  4. UBIDECARENONE [Concomitant]

REACTIONS (2)
  - Somnolence [Unknown]
  - Inappropriate schedule of drug administration [Unknown]
